FAERS Safety Report 10030279 (Version 1)
Quarter: 2014Q1

REPORT INFORMATION
  Report Type: Spontaneous
  Country: US (occurrence: US)
  Receive Date: 20140323
  Receipt Date: 20140323
  Transmission Date: 20141002
  Serious: No
  Sender: FDA-Public Use
  Company Number: US-ALLERGAN-1308082US

PATIENT
  Age: 57 Year
  Sex: Male

DRUGS (3)
  1. LATISSE 0.03% [Suspect]
     Indication: GROWTH OF EYELASHES
     Dosage: 1 GTT, QHS
     Route: 061
  2. LATISSE 0.03% [Suspect]
     Indication: HAIR GROWTH ABNORMAL
     Dosage: 1 GTT, QHS
  3. JUVEDERM [Concomitant]
     Indication: SKIN WRINKLING

REACTIONS (7)
  - Off label use [Unknown]
  - Incorrect dose administered [Unknown]
  - Madarosis [Unknown]
  - Madarosis [Unknown]
  - Trichorrhexis [Unknown]
  - Trichorrhexis [Unknown]
  - Drug ineffective [Unknown]
